FAERS Safety Report 8541508 (Version 4)
Quarter: 2012Q4

REPORT INFORMATION
  Report Type: 
  Country: JP (occurrence: JP)
  Receive Date: 20120502
  Receipt Date: 20120928
  Transmission Date: 20130627
  Serious: Yes (Hospitalization, Other)
  Sender: FDA-Public Use
  Company Number: JP-JNJFOC-20120414187

PATIENT
  Age: 47 Year
  Sex: Male

DRUGS (3)
  1. TRAMCET [Suspect]
     Indication: PRODUCT USED FOR UNKNOWN INDICATION
     Dosage: one per one day
     Route: 048
     Dates: start: 201202
  2. TRAMCET [Suspect]
     Indication: PRODUCT USED FOR UNKNOWN INDICATION
     Dosage: one per one day
     Route: 048
     Dates: start: 20111228, end: 20111228
  3. UNKNOWN MEDICATION [Concomitant]
     Route: 065

REACTIONS (1)
  - Pancreatitis acute [Unknown]
